FAERS Safety Report 5909668-1 (Version None)
Quarter: 2008Q4

REPORT INFORMATION
  Report Type: 
  Country: None (occurrence: None)
  Receive Date: 20081007
  Receipt Date: 20080926
  Transmission Date: 20090506
  Serious: Yes (Hospitalization, Disabling)
  Sender: FDA-Public Use
  Company Number: PHBS2002BE02121

PATIENT
  Sex: Male

DRUGS (4)
  1. LAMISIL [Suspect]
     Indication: PITYRIASIS ROSEA
     Dosage: 250 MG/D
     Route: 048
     Dates: start: 20020201, end: 20020204
  2. LORMETAZEPAM [Concomitant]
  3. ZYRTEC [Concomitant]
     Dosage: 10 MG, QD
     Dates: start: 20020201
  4. CALCIUM-SANDOZ [Concomitant]
     Dosage: 1 DF/DAY
     Dates: start: 20020201

REACTIONS (13)
  - ARTHRALGIA [None]
  - BLOOD CREATINE PHOSPHOKINASE INCREASED [None]
  - C-REACTIVE PROTEIN INCREASED [None]
  - DEMYELINATING POLYNEUROPATHY [None]
  - DYSAESTHESIA [None]
  - MUSCLE FATIGUE [None]
  - MUSCLE SPASMS [None]
  - MYALGIA [None]
  - NERVOUSNESS [None]
  - OEDEMA PERIPHERAL [None]
  - PARAESTHESIA [None]
  - PRURITUS [None]
  - SLEEP DISORDER DUE TO GENERAL MEDICAL CONDITION, INSOMNIA TYPE [None]
